FAERS Safety Report 5857328-8 (Version None)
Quarter: 2008Q3

REPORT INFORMATION
  Report Type: 
  Country: None (occurrence: None)
  Receive Date: 20080826
  Receipt Date: 20080814
  Transmission Date: 20090109
  Serious: Yes (Other)
  Sender: FDA-Public Use
  Company Number: FI-JNJFOC-20080703484

PATIENT
  Sex: Female
  Weight: 70 kg

DRUGS (13)
  1. REMICADE [Suspect]
     Indication: RHEUMATOID ARTHRITIS
     Route: 042
  2. METHOTREXATE SODIUM [Concomitant]
  3. FOLIC ACID [Concomitant]
  4. PREDNISOLON [Concomitant]
  5. COVERSYL [Concomitant]
  6. NEXIUM [Concomitant]
  7. KALCIPOS-D [Concomitant]
  8. CRESTOR [Concomitant]
  9. EMCONCOR [Concomitant]
  10. PRIMASPAN [Concomitant]
  11. UNSPECIFIED PREMEDICATION [Concomitant]
     Indication: PREMEDICATION
  12. OXIKLORIN [Concomitant]
  13. TREXAN [Concomitant]

REACTIONS (6)
  - ANAPHYLACTOID REACTION [None]
  - DYSPNOEA [None]
  - FLANK PAIN [None]
  - RESPIRATORY DISORDER [None]
  - SKIN REACTION [None]
  - URINARY TRACT INFECTION [None]
